FAERS Safety Report 16654047 (Version 1)
Quarter: 2019Q3

REPORT INFORMATION
  Report Type: Spontaneous
  Country: CH (occurrence: CH)
  Receive Date: 20190731
  Receipt Date: 20190731
  Transmission Date: 20191004
  Serious: Yes (Hospitalization, Other)
  Sender: FDA-Public Use
  Company Number: CH-NOVOPROD-675410

PATIENT
  Age: 78 Year
  Sex: Female

DRUGS (10)
  1. OXYBUTYNIN. [Concomitant]
     Active Substance: OXYBUTYNIN CHLORIDE
     Indication: PRODUCT USED FOR UNKNOWN INDICATION
     Dosage: UNK
     Route: 065
  2. TRESIBA [Suspect]
     Active Substance: INSULIN DEGLUDEC
     Indication: PRODUCT USED FOR UNKNOWN INDICATION
     Dosage: UNK
     Route: 058
     Dates: start: 20190507
  3. NOVORAPID [Suspect]
     Active Substance: INSULIN ASPART
     Indication: PRODUCT USED FOR UNKNOWN INDICATION
     Dosage: 12 IU, QD (6 IU MORNING + 2 IU EVENING + 4 IU MIDDAY)
     Route: 058
     Dates: start: 20190507
  4. PANCREATIN [Concomitant]
     Active Substance: PANCRELIPASE
     Indication: PRODUCT USED FOR UNKNOWN INDICATION
     Dosage: UNK
     Route: 065
  5. TRESIBA [Suspect]
     Active Substance: INSULIN DEGLUDEC
     Dosage: 10 IU, QD (INSULINE DEGLUDEC INJECT 10 UI 1X/D SC (MORNING))
     Route: 058
  6. PROPRANOLOL [Concomitant]
     Active Substance: PROPRANOLOL HYDROCHLORIDE
     Indication: PRODUCT USED FOR UNKNOWN INDICATION
     Dosage: UNK
     Route: 065
  7. TRESIBA [Suspect]
     Active Substance: INSULIN DEGLUDEC
     Dosage: 12 IU, QD
     Route: 058
  8. XARELTO [Suspect]
     Active Substance: RIVAROXABAN
     Indication: ATRIAL FIBRILLATION
     Dosage: 20 MG, QD
     Route: 048
     Dates: start: 20190705
  9. VITAMIN D3 [Concomitant]
     Active Substance: CHOLECALCIFEROL
     Indication: PRODUCT USED FOR UNKNOWN INDICATION
     Dosage: UNK
     Route: 065
  10. DOMPERIDONE [Concomitant]
     Active Substance: DOMPERIDONE
     Indication: PRODUCT USED FOR UNKNOWN INDICATION
     Dosage: UNK AS NECESSARY
     Route: 065

REACTIONS (2)
  - Hypoglycaemia [Unknown]
  - Purpura [Not Recovered/Not Resolved]

NARRATIVE: CASE EVENT DATE: 20190701
